FAERS Safety Report 15438738 (Version 1)
Quarter: 2018Q3

REPORT INFORMATION
  Report Type: Spontaneous
  Country: US (occurrence: US)
  Receive Date: 20180924
  Receipt Date: 20180924
  Transmission Date: 20181010
  Serious: Yes (Other)
  Sender: FDA-Public Use
  Company Number: None

PATIENT
  Age: 72 Year
  Sex: Female
  Weight: 51.75 kg

DRUGS (6)
  1. MULTIPLE VITAMIN [Concomitant]
     Active Substance: VITAMINS
  2. CALCIUM [Concomitant]
     Active Substance: CALCIUM
  3. CALCIUM CHANNEL BLOCKER [Concomitant]
     Active Substance: UNSPECIFIED INGREDIENT
  4. FOSAMAX GENERIC [Concomitant]
  5. ANASTROZOLE 1MG [Suspect]
     Active Substance: ANASTROZOLE
     Indication: OESTROGEN RECEPTOR POSITIVE BREAST CANCER
     Dosage: ?          QUANTITY:1 DF DOSAGE FORM;?
     Route: 048
  6. LRVOTHYROXINE [Concomitant]

REACTIONS (2)
  - Discomfort [None]
  - Urinary incontinence [None]

NARRATIVE: CASE EVENT DATE: 20180201
